FAERS Safety Report 24844637 (Version 1)
Quarter: 2025Q1

REPORT INFORMATION
  Report Type: Spontaneous
  Country: US (occurrence: None)
  Receive Date: 20250115
  Receipt Date: 20250115
  Transmission Date: 20250409
  Serious: Yes (Hospitalization)
  Sender: FDA-CTU
  Company Number: None

PATIENT
  Age: 42 Year
  Sex: Female
  Weight: 73.8 kg

DRUGS (14)
  1. CARBOPLATIN [Suspect]
     Active Substance: CARBOPLATIN
     Dates: end: 20241226
  2. PACLITAXEL [Suspect]
     Active Substance: PACLITAXEL
     Dates: end: 20241226
  3. ACETAMINOPHEN [Concomitant]
     Active Substance: ACETAMINOPHEN
  4. BACLOFEN [Concomitant]
     Active Substance: BACLOFEN
  5. CETIRIZINE [Concomitant]
     Active Substance: CETIRIZINE HYDROCHLORIDE
  6. ESCITALOPRAM [Concomitant]
     Active Substance: ESCITALOPRAM OXALATE
  7. DIPHENHYDRAMINE HYDROCHLORIDE\LIDOCAINE HYDROCHLORIDE\NYSTATIN [Concomitant]
     Active Substance: DIPHENHYDRAMINE HYDROCHLORIDE\LIDOCAINE HYDROCHLORIDE\NYSTATIN
  8. METOPROLOL [Concomitant]
     Active Substance: METOPROLOL
  9. NYSTATIN [Concomitant]
     Active Substance: NYSTATIN
  10. OXYCODONE [Concomitant]
     Active Substance: OXYCODONE
  11. PANTOPRAZOLE SODIUM [Concomitant]
     Active Substance: PANTOPRAZOLE SODIUM
  12. PROCHLOPERAZINE [Concomitant]
  13. RIVAOXABAN [Concomitant]
  14. SINGULAIR [Concomitant]
     Active Substance: MONTELUKAST SODIUM

REACTIONS (7)
  - Infusion related reaction [None]
  - Rash [None]
  - Pruritus [None]
  - Chest pain [None]
  - Sinus tachycardia [None]
  - Vomiting [None]
  - Blood magnesium decreased [None]

NARRATIVE: CASE EVENT DATE: 20241231
